FAERS Safety Report 11953449 (Version 1)
Quarter: 2016Q1

REPORT INFORMATION
  Report Type: Spontaneous
  Country: US (occurrence: US)
  Receive Date: 20160126
  Receipt Date: 20160126
  Transmission Date: 20160526
  Serious: No
  Sender: FDA-Public Use
  Company Number: US-HORIZON-PEN-0012-2016

PATIENT
  Age: 54 Year
  Sex: Male

DRUGS (4)
  1. PENNSAID [Suspect]
     Active Substance: DICLOFENAC SODIUM
     Indication: OSTEOARTHRITIS
     Dosage: TWICE DAILY
  2. SULINDAC. [Concomitant]
     Active Substance: SULINDAC
  3. FAMOTIDINE. [Concomitant]
     Active Substance: FAMOTIDINE
  4. LOSARTAN. [Concomitant]
     Active Substance: LOSARTAN

REACTIONS (1)
  - Off label use [Unknown]
